FAERS Safety Report 24929165 (Version 1)
Quarter: 2025Q1

REPORT INFORMATION
  Report Type: Spontaneous
  Country: US (occurrence: None)
  Receive Date: 20250204
  Receipt Date: 20250204
  Transmission Date: 20250408
  Serious: No
  Sender: FDA-CTU
  Company Number: None

PATIENT
  Age: 73 Year
  Sex: Male

DRUGS (1)
  1. AMIODARONE HYDROCHLORIDE [Suspect]
     Active Substance: AMIODARONE HYDROCHLORIDE
     Indication: Ventricular tachycardia

REACTIONS (4)
  - Hypothyroidism [None]
  - Interstitial lung disease [None]
  - Toxicity to various agents [None]
  - Hyperthyroidism [None]

NARRATIVE: CASE EVENT DATE: 20230330
